FAERS Safety Report 9654685 (Version 1)
Quarter: 2013Q4

REPORT INFORMATION
  Report Type: Spontaneous
  Country: SE (occurrence: None)
  Receive Date: 20131028
  Receipt Date: 20131028
  Transmission Date: 20140711
  Serious: Yes (Death, Other)
  Sender: FDA-Public Use
  Company Number: 2013301214

PATIENT
  Age: 59 Year
  Sex: Male

DRUGS (12)
  1. FRAGMIN (DALTEPARIN SODIUM) SOLUTION FOR INJECTION [Suspect]
     Dosage: 15000 IU, 1X/DAY
     Dates: end: 20130818
  2. OXYNORM (OXYCODONE HYDROCHLORIDE) CAPSULE [Concomitant]
  3. PRIMPERAN (METOCLOPRAMIDE) [Concomitant]
  4. SUTENT (SUNITINIB MALATE) [Concomitant]
  5. OMEPRAZOLE TEVA (OMEPRAZOLE) [Concomitant]
  6. TARGINIQ (NALOXONE, OXYCODONE) [Concomitant]
  7. PANODIL(PARACETAMOL) [Concomitant]
  8. PROPAVAN (PROPIOMAZINE MALEATE) [Concomitant]
  9. PREDNISOLON PFIZER (PREDNISOLONE) [Concomitant]
  10. TIKACILLIN (PHENOXYMETHYLPHENICILLIN POTASSIUM) [Concomitant]
  11. FORLAX (MACROGOL) [Concomitant]
  12. CILAXORAL (SODIUM PICOSULFATE) [Concomitant]

REACTIONS (3)
  - Cerebral haemorrhage [None]
  - Pulmonary embolism [None]
  - Condition aggravated [None]
